FAERS Safety Report 4610465-8 (Version None)
Quarter: 2005Q1

REPORT INFORMATION
  Report Type: 
  Country: None (occurrence: None)
  Receive Date: 20050301
  Receipt Date: 20050112
  Transmission Date: 20050727
  Serious: No
  Sender: FDA-Public Use
  Company Number: WAES 0501USA01735

PATIENT
  Age: 46 Year
  Sex: Female

DRUGS (4)
  1. ZETIA [Suspect]
     Dosage: 10 MG/UNK/PO
     Route: 048
  2. LEXAPRO [Concomitant]
  3. CALCIUM GLUCONATE [Concomitant]
  4. THYROID TAB [Concomitant]

REACTIONS (5)
  - ABDOMINAL PAIN [None]
  - ASTHENIA [None]
  - DIZZINESS [None]
  - MYDRIASIS [None]
  - NAUSEA [None]
